FAERS Safety Report 8152339-4 (Version None)
Quarter: 2012Q1

REPORT INFORMATION
  Report Type: 
  Country: None (occurrence: None)
  Receive Date: 20120221
  Receipt Date: 20120208
  Transmission Date: 20120608
  Serious: Yes (Hospitalization)
  Sender: FDA-Public Use
  Company Number: CA-JNJFOC-20120205712

PATIENT
  Sex: Female
  Weight: 100.5 kg

DRUGS (12)
  1. CRESTOR [Concomitant]
     Route: 065
  2. NASONEX [Concomitant]
     Route: 065
  3. CLOBETASOL PROPIONATE [Concomitant]
     Route: 065
  4. ARAVA [Concomitant]
     Route: 065
  5. TYLENOL-500 [Concomitant]
     Route: 065
  6. AVAPRO [Concomitant]
     Route: 065
  7. REMICADE [Suspect]
     Indication: PSORIATIC ARTHROPATHY
     Route: 042
     Dates: start: 20101101
  8. METFORMIN HCL [Concomitant]
     Route: 065
  9. PREDNISONE TAB [Concomitant]
     Route: 065
  10. SYNTHROID [Concomitant]
     Route: 065
  11. CODEINE SULFATE [Concomitant]
     Route: 065
  12. RABEPRAZOLE SODIUM [Concomitant]
     Route: 065

REACTIONS (1)
  - VARICOSE VEIN OPERATION [None]
